FAERS Safety Report 16048922 (Version 2)
Quarter: 2019Q1

REPORT INFORMATION
  Report Type: Spontaneous
  Country: FR (occurrence: FR)
  Receive Date: 20190307
  Receipt Date: 20190313
  Transmission Date: 20190418
  Serious: Yes (Death, Other)
  Sender: FDA-Public Use
  Company Number: FR-PFIZER INC-2019099906

PATIENT
  Age: 36 Year
  Sex: Male

DRUGS (4)
  1. IDARUBICIN HCL [Suspect]
     Active Substance: IDARUBICIN HYDROCHLORIDE
     Indication: ACUTE MYELOID LEUKAEMIA
     Dosage: 8 MG/M2, UNK (FROM DAY 1 TO DAY 5)
     Dates: start: 19930514
  2. IDARUBICIN HCL [Suspect]
     Active Substance: IDARUBICIN HYDROCHLORIDE
     Dosage: 10 MG/M2, UNK (FROM DAY 5 TO DAY 6)
     Dates: start: 19930712
  3. CYTARABINE. [Suspect]
     Active Substance: CYTARABINE
     Indication: ACUTE MYELOID LEUKAEMIA
     Dosage: 200 MG/M2, UNK (FROM DAY 1 TO DAY 7)
     Dates: start: 19930514
  4. CYTARABINE. [Suspect]
     Active Substance: CYTARABINE
     Dosage: 3000 MG/M2, 2X/DAY (3 G/M2, FROM DAY 1 TO DAY 4),HIGHDOSE
     Dates: start: 19930712

REACTIONS (1)
  - Second primary malignancy [Recovering/Resolving]

NARRATIVE: CASE EVENT DATE: 1993
